FAERS Safety Report 6785800-5 (Version None)
Quarter: 2010Q2

REPORT INFORMATION
  Report Type: 
  Country: None (occurrence: None)
  Receive Date: 20100623
  Receipt Date: 20100621
  Transmission Date: 20101027
  Serious: Yes (Death, Life-Threatening, Hospitalization, Other)
  Sender: FDA-Public Use
  Company Number: TW-ROXANE LABORATORIES, INC.-2010-RO-00736RO

PATIENT
  Age: 82 Year
  Sex: Male

DRUGS (10)
  1. DIGOXIN [Suspect]
     Dosage: 0.125 MG
  2. COUMADIN [Suspect]
     Dosage: 5 MG
  3. ATROPINE [Suspect]
     Indication: INDUCTION OF ANAESTHESIA
  4. ATROPINE [Suspect]
     Route: 042
  5. THIOPENTAL SODIUM [Suspect]
     Indication: INDUCTION OF ANAESTHESIA
  6. FENTANYL [Suspect]
     Indication: INDUCTION OF ANAESTHESIA
  7. FENTANYL [Suspect]
     Indication: MAINTENANCE OF ANAESTHESIA
  8. ROCURONIUM [Suspect]
     Indication: INDUCTION OF ANAESTHESIA
  9. ROCURONIUM [Suspect]
     Indication: MAINTENANCE OF ANAESTHESIA
  10. ISOFLURANE [Suspect]
     Indication: MAINTENANCE OF ANAESTHESIA

REACTIONS (11)
  - ANAEMIA [None]
  - ATRIOVENTRICULAR BLOCK COMPLETE [None]
  - BRADYCARDIA [None]
  - CARDIOMEGALY [None]
  - DEATH [None]
  - FALL [None]
  - LEFT VENTRICULAR HYPERTROPHY [None]
  - LUNG NEOPLASM [None]
  - RENAL IMPAIRMENT [None]
  - SUBDURAL HAEMATOMA [None]
  - VENTRICULAR HYPOKINESIA [None]
